FAERS Safety Report 16993092 (Version 1)
Quarter: 2019Q4

REPORT INFORMATION
  Report Type: Spontaneous
  Country: DE (occurrence: DE)
  Receive Date: 20191105
  Receipt Date: 20191105
  Transmission Date: 20200122
  Serious: Yes (Hospitalization, Other)
  Sender: FDA-Public Use
  Company Number: DE-PFIZER INC-2019472804

PATIENT
  Age: 72 Year
  Sex: Female

DRUGS (3)
  1. ARAVA [Suspect]
     Active Substance: LEFLUNOMIDE
     Dosage: 10 MG, 1X/DAY
  2. METHOTREXATE SODIUM. [Suspect]
     Active Substance: METHOTREXATE SODIUM
     Indication: RHEUMATOID ARTHRITIS
     Dosage: UNK
  3. ARAVA [Suspect]
     Active Substance: LEFLUNOMIDE
     Dosage: 20 MG, QOW, 2 TIMES EVERY 2ND DAY

REACTIONS (8)
  - Alopecia [Recovering/Resolving]
  - Hypertension [Recovering/Resolving]
  - Drug intolerance [Unknown]
  - Diarrhoea [Unknown]
  - Weight decreased [Unknown]
  - Herpes virus infection [Unknown]
  - Decreased appetite [Unknown]
  - Bowel movement irregularity [Unknown]
